FAERS Safety Report 6706824-X (Version None)
Quarter: 2010Q2

REPORT INFORMATION
  Report Type: 
  Country: None (occurrence: None)
  Receive Date: 20100503
  Receipt Date: 20100414
  Transmission Date: 20101027
  Serious: Yes (Hospitalization, Other)
  Sender: FDA-Public Use
  Company Number: US-BAYER-200935949NA

PATIENT
  Age: 33 Year
  Sex: Female
  Weight: 132 kg

DRUGS (6)
  1. YAZ [Suspect]
     Indication: ORAL CONTRACEPTION
     Route: 048
     Dates: start: 20070726, end: 20071010
  2. NAPROXEN [Concomitant]
  3. ORAL CONTRACEPTIVES [Concomitant]
  4. ATENOLOL [Concomitant]
     Dosage: UNIT DOSE: 50 MG
     Route: 065
  5. PAXIL [Concomitant]
     Route: 065
  6. WARFARIN [Concomitant]
     Route: 065

REACTIONS (6)
  - ARTHRALGIA [None]
  - DEEP VEIN THROMBOSIS [None]
  - MUSCLE TIGHTNESS [None]
  - OEDEMA PERIPHERAL [None]
  - PAIN [None]
  - PAIN IN EXTREMITY [None]
